FAERS Safety Report 4282692-3 (Version None)
Quarter: 2004Q1

REPORT INFORMATION
  Report Type: 
  Country: None (occurrence: None)
  Receive Date: 20040130
  Receipt Date: 20030227
  Transmission Date: 20041129
  Serious: No
  Sender: FDA-Public Use
  Company Number: US-BRISTOL-MYERS SQUIBB COMPANY-12197315

PATIENT
  Sex: Female

DRUGS (4)
  1. SERZONE [Suspect]
     Indication: DEPRESSION
     Dosage: DOSE REDUCED TO 225 MG DAILY.
     Route: 048
  2. WELLBUTRIN [Concomitant]
  3. IBUPROFEN [Concomitant]
  4. GEODON [Concomitant]

REACTIONS (1)
  - DRUG INEFFECTIVE [None]
